FAERS Safety Report 16115024 (Version 2)
Quarter: 2019Q4

REPORT INFORMATION
  Report Type: Spontaneous
  Country: FR (occurrence: FR)
  Receive Date: 20190325
  Receipt Date: 20191118
  Transmission Date: 20200122
  Serious: Yes (Death, Hospitalization)
  Sender: FDA-Public Use
  Company Number: FR-SAMSUNG BIOEPIS-SB-2019-06450

PATIENT
  Age: 51 Year
  Sex: Female

DRUGS (2)
  1. INFLIXIMAB [Suspect]
     Active Substance: INFLIXIMAB
     Indication: HERMANSKY-PUDLAK SYNDROME
     Dosage: DOSAGE FORM: LYOPHILIZED POWDER
     Route: 065
  2. AZATHIOPRINE. [Suspect]
     Active Substance: AZATHIOPRINE
     Indication: HERMANSKY-PUDLAK SYNDROME
     Route: 065

REACTIONS (7)
  - Malnutrition [Unknown]
  - Pulmonary fibrosis [Unknown]
  - Off label use [Unknown]
  - Bronchospasm [Unknown]
  - Anaphylactic reaction [Unknown]
  - Product use in unapproved indication [Unknown]
  - Respiratory failure [Fatal]
